FAERS Safety Report 24024779 (Version 2)
Quarter: 2024Q3

REPORT INFORMATION
  Report Type: Report from Study
  Country: RO (occurrence: RO)
  Receive Date: 20240628
  Receipt Date: 20240710
  Transmission Date: 20241017
  Serious: No
  Sender: ROCHE
  Company Number: RO-ROCHE-3391148

PATIENT
  Age: 62 Year
  Sex: Female
  Weight: 80.0 kg

DRUGS (1)
  1. PHESGO [Suspect]
     Active Substance: HYALURONIDASE-ZZXF\PERTUZUMAB\TRASTUZUMAB
     Indication: Breast cancer
     Route: 058
     Dates: start: 20221114

REACTIONS (6)
  - Pruritus [Unknown]
  - Hyperhidrosis [Unknown]
  - Fatigue [Unknown]
  - Fatigue [Unknown]
  - Bone pain [Unknown]
  - Scratch [Unknown]
